FAERS Safety Report 5506519-4 (Version None)
Quarter: 2007Q4

REPORT INFORMATION
  Report Type: 
  Country: None (occurrence: None)
  Receive Date: 20071105
  Receipt Date: 20071031
  Transmission Date: 20080405
  Serious: Yes (Hospitalization)
  Sender: FDA-Public Use
  Company Number: A0691307A

PATIENT
  Age: 53 Year
  Sex: Male

DRUGS (5)
  1. ROSIGLITAZONE [Suspect]
     Dosage: 8MG PER DAY
     Route: 048
     Dates: start: 20040127, end: 20070130
  2. BLINDED TRIAL MEDICATION [Suspect]
     Dosage: 1UNIT PER DAY
     Route: 048
     Dates: start: 20061003, end: 20070129
  3. CARVEDILOL [Concomitant]
     Dates: start: 20060328
  4. ENALAPRIL MALEATE [Concomitant]
     Dates: start: 20041227
  5. FENOFIBRATE [Concomitant]
     Dates: start: 20041118

REACTIONS (1)
  - COLON CANCER [None]
